FAERS Safety Report 18140249 (Version 1)
Quarter: 2020Q3

REPORT INFORMATION
  Report Type: Spontaneous
  Country: SE (occurrence: SE)
  Receive Date: 20200812
  Receipt Date: 20200812
  Transmission Date: 20201103
  Serious: Yes (Life-Threatening)
  Sender: FDA-Public Use
  Company Number: SE-TEVA-2020-SE-1811606

PATIENT
  Age: 43 Year
  Sex: Male

DRUGS (6)
  1. OXALIPLATIN. [Suspect]
     Active Substance: OXALIPLATIN
     Dosage: 280 MG
     Route: 042
     Dates: start: 20200604, end: 20200604
  2. URSOFALK [Concomitant]
     Active Substance: URSODIOL
     Dates: start: 20190801
  3. BETAPRED [Concomitant]
     Active Substance: BETAMETHASONE SODIUM PHOSPHATE
     Dates: start: 20200515
  4. OXALIPLATIN. [Suspect]
     Active Substance: OXALIPLATIN
     Dosage: 280 MG
     Route: 042
     Dates: start: 20200626, end: 20200626
  5. ONDANSETRON [Concomitant]
     Active Substance: ONDANSETRON
     Dates: start: 20200515
  6. LOPERAMID [Concomitant]
     Active Substance: LOPERAMIDE
     Dosage: VB
     Dates: start: 20200429

REACTIONS (1)
  - Ventricular fibrillation [Recovered/Resolved]

NARRATIVE: CASE EVENT DATE: 20200711
